FAERS Safety Report 6907884-3 (Version None)
Quarter: 2010Q3

REPORT INFORMATION
  Report Type: 
  Country: None (occurrence: None)
  Receive Date: 20100805
  Receipt Date: 20100723
  Transmission Date: 20110219
  Serious: Yes (Hospitalization)
  Sender: FDA-Public Use
  Company Number: PHFR2010GB01251

PATIENT
  Sex: Male

DRUGS (5)
  1. CLOZARIL [Suspect]
     Indication: SCHIZOPHRENIA
     Dosage: UNK
     Route: 048
     Dates: start: 19980717
  2. LORAZEPAM [Concomitant]
  3. VENLAFAXINE [Concomitant]
  4. ALFACALCIDOL [Concomitant]
  5. DEPAKOTE [Concomitant]

REACTIONS (7)
  - ABDOMINAL DISCOMFORT [None]
  - BLOOD CREATININE INCREASED [None]
  - HYPERTENSION [None]
  - MENTAL IMPAIRMENT [None]
  - NEPHROPATHY [None]
  - OBESITY [None]
  - RENAL FAILURE [None]
